FAERS Safety Report 14565695 (Version 3)
Quarter: 2018Q2

REPORT INFORMATION
  Report Type: Report from Study
  Country: US (occurrence: US)
  Receive Date: 20180223
  Receipt Date: 20180502
  Transmission Date: 20180711
  Serious: Yes (Death, Other)
  Sender: FDA-Public Use
  Company Number: US-ROCHE-2074292

PATIENT
  Age: 62 Year
  Sex: Female
  Weight: 61.29 kg

DRUGS (7)
  1. BACLOFEN. [Concomitant]
     Active Substance: BACLOFEN
  2. PROZAC [Concomitant]
     Active Substance: FLUOXETINE HYDROCHLORIDE
  3. PROTONIX [Concomitant]
     Active Substance: PANTOPRAZOLE SODIUM
  4. OCREVUS [Suspect]
     Active Substance: OCRELIZUMAB
     Indication: PRIMARY PROGRESSIVE MULTIPLE SCLEROSIS
     Route: 042
     Dates: start: 201706
  5. OCREVUS [Suspect]
     Active Substance: OCRELIZUMAB
     Route: 042
     Dates: start: 201707
  6. ZOCOR [Concomitant]
     Active Substance: SIMVASTATIN
  7. ATIVAN [Concomitant]
     Active Substance: LORAZEPAM

REACTIONS (8)
  - Impaired healing [Unknown]
  - Death [Fatal]
  - Immunodeficiency [Unknown]
  - Calcinosis [Unknown]
  - Condition aggravated [Unknown]
  - Gastrointestinal disorder [Unknown]
  - Infection [Unknown]
  - Cardiac disorder [Unknown]

NARRATIVE: CASE EVENT DATE: 20180116
